FAERS Safety Report 6371505-1 (Version None)
Quarter: 2009Q3

REPORT INFORMATION
  Report Type: 
  Country: None (occurrence: None)
  Receive Date: 20090923
  Receipt Date: 20080110
  Transmission Date: 20100115
  Serious: Yes (Other)
  Sender: FDA-Public Use
  Company Number: US-ASTRAZENECA-2007UW25157

PATIENT
  Age: 16295 Day
  Sex: Female
  Weight: 78 kg

DRUGS (12)
  1. SEROQUEL [Suspect]
     Indication: ANXIETY
     Dosage: 20 MG - 40 MG
     Route: 048
     Dates: start: 20060301, end: 20060701
  2. SEROQUEL [Suspect]
     Indication: DEPRESSION
     Dosage: 20 MG - 40 MG
     Route: 048
     Dates: start: 20060301, end: 20060701
  3. LIPITOR [Concomitant]
     Dates: start: 20060112
  4. ZOLOFT [Concomitant]
     Dates: start: 20060626
  5. CLONAZEPAM [Concomitant]
     Dates: start: 20060626
  6. EFFEXOR XR [Concomitant]
     Dates: start: 20050404
  7. LORTAB [Concomitant]
     Indication: PAIN
     Dosage: 5 MG EVERY SIX HOURS AS NEEDED
     Dates: start: 20060104
  8. ZOCOR [Concomitant]
     Dates: start: 20060104
  9. LISINOPRIL [Concomitant]
     Dates: start: 20060104
  10. LASIX [Concomitant]
     Dates: start: 20060104
  11. COREG [Concomitant]
     Dates: start: 20060104
  12. ASPIRIN [Concomitant]
     Dates: start: 20060104

REACTIONS (2)
  - DIABETES MELLITUS [None]
  - DIABETES MELLITUS INADEQUATE CONTROL [None]
